FAERS Safety Report 24450425 (Version 1)
Quarter: 2024Q4

REPORT INFORMATION
  Report Type: Spontaneous
  Country: SE (occurrence: SE)
  Receive Date: 20241017
  Receipt Date: 20241017
  Transmission Date: 20250115
  Serious: Yes (Hospitalization, Other)
  Sender: MYLAN
  Company Number: None

PATIENT
  Age: 48 Year
  Sex: Female

DRUGS (21)
  1. CELEBRA [Suspect]
     Active Substance: CELECOXIB
     Indication: Post-traumatic neck syndrome
     Dosage: 200 MILLIGRAM, BID, PER 12 HOURS
     Route: 048
     Dates: start: 20191122, end: 20200903
  2. NAPROXEN [Suspect]
     Active Substance: NAPROXEN
     Indication: Post-traumatic neck syndrome
     Dosage: PRN (1 IF NEEDED MAX 2)/ ASNECESSARY
     Route: 048
     Dates: start: 20130913, end: 20210318
  3. NAPROXEN [Suspect]
     Active Substance: NAPROXEN
     Indication: Abdominal pain
  4. NAPROXEN [Suspect]
     Active Substance: NAPROXEN
     Indication: Neck pain
  5. NAPROXEN [Suspect]
     Active Substance: NAPROXEN
     Indication: Back pain
  6. NAPROXEN [Suspect]
     Active Substance: NAPROXEN
     Indication: Post-traumatic neck syndrome
     Dosage: PRN (1 IF NEEDED MAX 2), ASNECESSARY
     Route: 048
     Dates: start: 20181218, end: 20191122
  7. Behepan [Concomitant]
     Dosage: UNK
     Route: 065
  8. ESTRADIOL [Concomitant]
     Active Substance: ESTRADIOL
     Dosage: VARYING DOSAGE FROM 37.5 UG/24 HOURS TO 100 UG/24 HOURS (THE LATTER DOSE 2020-06-08--10-25), QW
     Route: 065
     Dates: start: 20191111, end: 20210317
  9. EBASTINE [Concomitant]
     Active Substance: EBASTINE
     Dosage: 1 ASNECESSARY, PRN
     Route: 065
  10. PRUCALOPRIDE SUCCINATE [Concomitant]
     Active Substance: PRUCALOPRIDE SUCCINATE
     Dosage: 2 MILLIGRAM, QD
     Route: 065
     Dates: start: 20140108
  11. ACETAMINOPHEN [Concomitant]
     Active Substance: ACETAMINOPHEN
     Dosage: PRN (1-2 IF NEEDED MAX 6), ASNECESSARY
     Route: 065
     Dates: start: 20020611
  12. LINACLOTIDE [Concomitant]
     Active Substance: LINACLOTIDE
     Dosage: UNK
     Route: 065
     Dates: start: 20131223
  13. OMEPRAZOLE [Concomitant]
     Active Substance: OMEPRAZOLE
     Dosage: 20 MILLIGRAM, QD
     Route: 065
     Dates: start: 20140326
  14. DIAZEPAM [Concomitant]
     Active Substance: DIAZEPAM
     Dosage: PRN IF NEEDED/ ASNECESSARY
     Route: 065
  15. IMOVANE [Concomitant]
     Active Substance: ZOPICLONE
     Dosage: 1 ASNECESSARY, PRN
     Route: 065
     Dates: start: 20190716
  16. GABAPENTIN [Concomitant]
     Active Substance: GABAPENTIN
     Dosage: QD (SLIGHTLY VARYING DOSE OVER TIME WITH A MAXIMUM OF 3000 MG/DAY)
     Route: 065
     Dates: start: 20020611
  17. PROVERA [Concomitant]
     Active Substance: MEDROXYPROGESTERONE ACETATE
     Dosage: UNK ACCORDING TO SCHEDULE
     Route: 065
     Dates: start: 20200328, end: 20210316
  18. CITALOPRAM [Concomitant]
     Active Substance: CITALOPRAM
     Dosage: 10-40 MG
     Route: 065
     Dates: start: 20100511, end: 20200204
  19. PROPIOMAZINE [Concomitant]
     Active Substance: PROPIOMAZINE
     Dosage: QD 1-2 AT NIGHT
     Route: 065
  20. DOMPERIDONE [Concomitant]
     Active Substance: DOMPERIDONE
     Dosage: 1 ASNECESSARY, PRN
     Route: 065
     Dates: start: 20151030, end: 20200922
  21. Folacin [Concomitant]
     Dosage: UNK
     Route: 065

REACTIONS (9)
  - Syncope [Unknown]
  - C-reactive protein increased [Unknown]
  - Sepsis [Unknown]
  - Constipation [Recovered/Resolved with Sequelae]
  - Drug-induced liver injury [Recovered/Resolved with Sequelae]
  - Abdominal pain [Recovered/Resolved with Sequelae]
  - Nausea [Unknown]
  - Pain [Recovered/Resolved with Sequelae]
  - Transaminases increased [Recovered/Resolved with Sequelae]

NARRATIVE: CASE EVENT DATE: 20131029
